FAERS Safety Report 8476957 (Version 8)
Quarter: 2012Q4

REPORT INFORMATION
  Report Type: 
  Country: IE (occurrence: IE)
  Receive Date: 20120326
  Receipt Date: 20121106
  Transmission Date: 20130627
  Serious: Yes (Hospitalization)
  Sender: FDA-Public Use
  Company Number: PHHO2011IE019109

PATIENT
  Age: 63 Year
  Sex: Female
  Weight: 50.5 kg

DRUGS (12)
  1. AFINITOR [Suspect]
     Indication: BREAST CANCER METASTATIC
     Dosage: 2.5 mg, QD
     Route: 048
     Dates: start: 20110930, end: 20111111
  2. AFINITOR [Suspect]
     Dosage: 2.5 mg, UNK
     Route: 048
     Dates: start: 20111121, end: 20111125
  3. COMPARATOR TRASTUZUMAB [Suspect]
     Indication: BREAST CANCER METASTATIC
     Dosage: 102 mg, UNK
     Route: 042
     Dates: start: 20110930, end: 20111118
  4. COMPARATOR TRASTUZUMAB [Suspect]
     Dosage: 102 mg, UNK
     Dates: start: 20111202, end: 20111209
  5. COMPARATOR PACLITAXEL [Suspect]
     Indication: BREAST CANCER METASTATIC
     Dosage: 119 mg, UNK
     Route: 042
     Dates: start: 20110930, end: 20111104
  6. COMPARATOR PACLITAXEL [Suspect]
     Dosage: 119 mg, UNK
     Dates: start: 20111209, end: 20111209
  7. DIFENE [Suspect]
     Indication: PAIN
     Dosage: 175 mg, PRN
     Route: 065
     Dates: start: 20111101, end: 20111125
  8. ZANTAC [Concomitant]
     Indication: NAUSEA
     Dosage: 4 mg, TID
     Route: 048
     Dates: start: 20111021
  9. CALCICHEW [Concomitant]
     Dosage: UNK
     Dates: start: 20110916
  10. SENNA [Concomitant]
     Indication: LAXATIVE SUPPORTIVE CARE
     Dosage: UNK
     Dates: start: 20110908
  11. DEXAMETHASONE [Concomitant]
     Indication: NAUSEA
     Dosage: 4 mg, BID
     Route: 048
     Dates: start: 20110907
  12. ZOTON [Concomitant]
     Dosage: 30 mg, QD
     Route: 048
     Dates: start: 20110909

REACTIONS (2)
  - Colitis [Recovered/Resolved]
  - Neuralgia [Recovered/Resolved]
